FAERS Safety Report 5041540-4 (Version None)
Quarter: 2006Q2

REPORT INFORMATION
  Report Type: 
  Country: None (occurrence: None)
  Receive Date: 20060627
  Receipt Date: 20060621
  Transmission Date: 20061013
  Serious: Yes (Life-Threatening, Other)
  Sender: FDA-Public Use
  Company Number: 2006039512

PATIENT
  Age: 32 Year
  Sex: Female

DRUGS (1)
  1. GEODON [Suspect]
     Dosage: 20 MG

REACTIONS (2)
  - MALAISE [None]
  - VOMITING [None]
